FAERS Safety Report 8882917 (Version 1)
Quarter: 2012Q4

REPORT INFORMATION
  Report Type: 
  Country: US (occurrence: US)
  Receive Date: 20121103
  Receipt Date: 20121103
  Transmission Date: 20130627
  Serious: Yes (Life-Threatening, Hospitalization, Disabling, Other)
  Sender: FDA-Public Use
  Company Number: US-009507513-0704USA05892

PATIENT

DRUGS (12)
  1. FOSAMAX [Suspect]
     Indication: OSTEOPOROSIS
     Dosage: 70 mg, UNK
     Route: 048
     Dates: start: 199801, end: 200101
  2. FOSAMAX [Suspect]
     Dosage: 70 mg, UNK
     Route: 048
     Dates: start: 200101, end: 20050627
  3. FOSAMAX [Suspect]
     Dosage: 70 mg, QW
     Route: 048
     Dates: start: 20040120
  4. ACCUPRIL [Concomitant]
     Dates: start: 19980501, end: 200205
  5. AZATHIOPRINE [Concomitant]
     Dates: start: 199711, end: 200310
  6. MK-0135 [Concomitant]
     Dates: start: 199901, end: 199904
  7. METOPROLOL [Concomitant]
     Dates: start: 199803, end: 200203
  8. NEORAL [Concomitant]
     Dates: start: 199801, end: 199901
  9. GUAIFED [Concomitant]
     Dates: start: 199811
  10. LIDEX [Concomitant]
     Dates: start: 199801
  11. TRIAMTERENE [Concomitant]
     Dates: start: 199804
  12. ATREXEL [Concomitant]
     Dates: start: 199708, end: 199911

REACTIONS (49)
  - Leukopenia [Unknown]
  - Osteonecrosis of jaw [Recovering/Resolving]
  - Osteomyelitis [Recovering/Resolving]
  - Gout [Unknown]
  - Hypertension [Unknown]
  - Blood cholesterol [Unknown]
  - Gastrooesophageal reflux disease [Unknown]
  - Cardiac failure congestive [Unknown]
  - Oral herpes [Unknown]
  - Bacterial infection [Unknown]
  - Influenza [Unknown]
  - Fungal infection [Unknown]
  - Eye infection [Unknown]
  - Fracture [Unknown]
  - Alopecia [Not Recovered/Not Resolved]
  - Duodenal ulcer [Unknown]
  - Deep vein thrombosis [Unknown]
  - Spinal compression fracture [Unknown]
  - Candidiasis [Unknown]
  - Weight decreased [Not Recovered/Not Resolved]
  - Paresis cranial nerve [Unknown]
  - Pulmonary mass [Recovering/Resolving]
  - Gastroenteritis viral [Unknown]
  - Bronchitis [Unknown]
  - Sinusitis [Unknown]
  - Diabetes mellitus [Unknown]
  - Jaw fracture [Unknown]
  - Adverse drug reaction [Unknown]
  - Nasopharyngitis [Recovered/Resolved]
  - Malaise [Recovered/Resolved]
  - Hyperlipidaemia [Unknown]
  - Mouth ulceration [Unknown]
  - Tongue ulceration [Unknown]
  - Oral disorder [Not Recovered/Not Resolved]
  - Skin ulcer [Not Recovered/Not Resolved]
  - Oral disorder [Unknown]
  - Photosensitivity reaction [Unknown]
  - Mucosal inflammation [Unknown]
  - Lumbar vertebral fracture [Unknown]
  - Spinal column stenosis [Unknown]
  - Cachexia [Not Recovered/Not Resolved]
  - Herpes simplex [Unknown]
  - Speech disorder [Unknown]
  - Dysphagia [Unknown]
  - Dental caries [Unknown]
  - Tooth extraction [Unknown]
  - Skin atrophy [Unknown]
  - Cushingoid [Unknown]
  - Candidiasis [Unknown]
